FAERS Safety Report 5671134-9 (Version None)
Quarter: 2008Q1

REPORT INFORMATION
  Report Type: 
  Country: None (occurrence: None)
  Receive Date: 20080318
  Receipt Date: 20080225
  Transmission Date: 20080703
  Serious: No
  Sender: FDA-Public Use
  Company Number: US-JNJFOC-20080206109

PATIENT
  Sex: Female

DRUGS (6)
  1. INVEGA [Suspect]
     Route: 048
  2. INVEGA [Suspect]
     Indication: BIPOLAR DISORDER
     Route: 048
  3. TRAZODONE HCL [Concomitant]
     Indication: BIPOLAR DISORDER
  4. PROZAC [Concomitant]
     Indication: BIPOLAR DISORDER
  5. LITHIUM CARBONATE [Concomitant]
     Indication: BIPOLAR DISORDER
     Route: 048
  6. NEURONTIN [Concomitant]
     Route: 048

REACTIONS (2)
  - DRUG INEFFECTIVE [None]
  - OEDEMA PERIPHERAL [None]
